FAERS Safety Report 5903241-7 (Version None)
Quarter: 2008Q3

REPORT INFORMATION
  Report Type: 
  Country: None (occurrence: None)
  Receive Date: 20080926
  Receipt Date: 20080915
  Transmission Date: 20090109
  Serious: Yes (Life-Threatening, Hospitalization, Other)
  Sender: FDA-Public Use
  Company Number: 238533J08USA

PATIENT
  Age: 42 Year
  Sex: Female
  Weight: 50.2 kg

DRUGS (3)
  1. REBIF [Suspect]
     Indication: MULTIPLE SCLEROSIS
     Dosage: 44 MCG,3 IN 1 WEEKS, SUBCUTANEOUS
     Route: 058
     Dates: start: 20050513, end: 20080901
  2. SEROQUEL [Concomitant]
  3. UNSPECIFIED SEIZURE MEDICATION (ANTIEPILEPTICS) [Concomitant]

REACTIONS (11)
  - BLINDNESS [None]
  - BLOOD ALCOHOL INCREASED [None]
  - CONDITION AGGRAVATED [None]
  - CONVULSION [None]
  - DEAFNESS [None]
  - DRUG SCREEN POSITIVE [None]
  - LOSS OF CONSCIOUSNESS [None]
  - MULTIPLE SCLEROSIS [None]
  - MYOCARDIAL INFARCTION [None]
  - OVERDOSE [None]
  - PNEUMONIA ASPIRATION [None]
